FAERS Safety Report 12254626 (Version 1)
Quarter: 2016Q2

REPORT INFORMATION
  Report Type: Spontaneous
  Country: US (occurrence: US)
  Receive Date: 20160411
  Receipt Date: 20160411
  Transmission Date: 20160815
  Serious: No
  Sender: FDA-Public Use
  Company Number: US-SA-2015SA046054

PATIENT
  Age: 60 Year
  Sex: Female

DRUGS (1)
  1. ALLEGRA-D [Suspect]
     Active Substance: FEXOFENADINE\PSEUDOEPHEDRINE
     Indication: MULTIPLE ALLERGIES
     Dosage: TAKEN FROM:COUPLE OF DAYS AGO?TAKEN TO: ONLY ONE DOSE?DOSE: 60 MG/120 MG
     Route: 048

REACTIONS (2)
  - Heart rate increased [Recovered/Resolved]
  - Malaise [Recovered/Resolved]
